FAERS Safety Report 25273653 (Version 1)
Quarter: 2025Q2

REPORT INFORMATION
  Report Type: Spontaneous
  Country: US (occurrence: None)
  Receive Date: 20250505
  Receipt Date: 20250505
  Transmission Date: 20250717
  Serious: Yes (Hospitalization)
  Sender: FDA-CTU
  Company Number: None

PATIENT
  Age: 62 Year
  Sex: Female

DRUGS (1)
  1. COLLAGENASE SANTYL [Suspect]
     Active Substance: COLLAGENASE CLOSTRIDIUM HISTOLYTICUM
     Indication: Diabetic foot
     Dosage: APPLY TOPICALLY DAILY TOPICAL ?UNK- UNKNOWN  UNTIS/GRAM TOPICAL ??
     Route: 061
     Dates: start: 20250221

REACTIONS (2)
  - Diabetic foot [None]
  - Localised infection [None]

NARRATIVE: CASE EVENT DATE: 20250428
